FAERS Safety Report 8235870-2 (Version None)
Quarter: 2012Q1

REPORT INFORMATION
  Report Type: 
  Country: None (occurrence: None)
  Receive Date: 20120326
  Receipt Date: 20120320
  Transmission Date: 20120608
  Serious: No
  Sender: FDA-Public Use
  Company Number: US-PFIZER INC-2012072914

PATIENT
  Sex: Female

DRUGS (1)
  1. METHYLPREDNISOLONE SODIUM SUCCINATE [Suspect]
     Indication: SINUSITIS
     Dosage: UNK
     Dates: start: 20110901

REACTIONS (2)
  - INJECTION SITE INJURY [None]
  - INJECTION SITE REACTION [None]
